FAERS Safety Report 8176628-2 (Version None)
Quarter: 2012Q1

REPORT INFORMATION
  Report Type: 
  Country: None (occurrence: None)
  Receive Date: 20120123
  Receipt Date: 20110425
  Transmission Date: 20120608
  Serious: Yes (Hospitalization, Other)
  Sender: FDA-Public Use
  Company Number: 11975299

PATIENT
  Age: 63 Year
  Sex: Female

DRUGS (18)
  1. VITAMIN B12 [Concomitant]
  2. ATARAX [Concomitant]
  3. GLYBURIDE [Concomitant]
  4. ASPIRIN [Concomitant]
  5. ACTOSE (PIOGLITAZONE HYDROCHLORIDE) [Concomitant]
  6. FOLATE SODIUM (FOLATE SODIUM) [Concomitant]
  7. GLIPIZIDE [Concomitant]
  8. MAGNESIUM (MAGNESIUM) [Concomitant]
  9. GLUCOPHAGE [Concomitant]
  10. TOPROL-XL [Concomitant]
  11. CALCIUM CARBONATE [Concomitant]
  12. MIACALCIN [Concomitant]
  13. CARDIOLITE [Suspect]
     Indication: CARDIAC STRESS TEST
     Dosage: (30 MILLICURIES), INTRAVENOUS
     Route: 042
     Dates: start: 20020723, end: 20020725
  14. ADENOSINE [Suspect]
     Indication: CARDIAC STRESS TEST
     Dosage: 140 UG/KG/MIN, INTRAVENOUS
     Route: 042
     Dates: start: 20020723
  15. VASOTEC [Concomitant]
  16. LASIX [Concomitant]
  17. POTASSIUM CHLORIDE [Concomitant]
  18. VITAMIN E [Concomitant]

REACTIONS (1)
  - ANGIOEDEMA [None]
